FAERS Safety Report 19780156 (Version 1)
Quarter: 2021Q3

REPORT INFORMATION
  Report Type: Report from Study
  Country: TW (occurrence: TW)
  Receive Date: 20210902
  Receipt Date: 20210902
  Transmission Date: 20211014
  Serious: Yes (Other)
  Sender: FDA-Public Use
  Company Number: TW-VIIV HEALTHCARE LIMITED-TW2021APC183497

PATIENT
  Age: 40 Year
  Sex: Male

DRUGS (1)
  1. DOLUTEGRAVIR + LAMIVUDINE [Suspect]
     Active Substance: DOLUTEGRAVIR SODIUM\LAMIVUDINE
     Indication: HIV INFECTION
     Dosage: UNK UNK, QD, 1 TIME/DAY

REACTIONS (1)
  - Blood HIV RNA increased [Unknown]
